FAERS Safety Report 8610691-7 (Version None)
Quarter: 2012Q3

REPORT INFORMATION
  Report Type: 
  Country: None (occurrence: None)
  Receive Date: 20120822
  Receipt Date: 20120814
  Transmission Date: 20120928
  Serious: Yes (Other)
  Sender: FDA-Public Use
  Company Number: IT-JNJFOC-20120807222

PATIENT
  Sex: Female

DRUGS (2)
  1. HALOPERIDOL LACTATE [Suspect]
     Indication: DEPRESSION
     Route: 048
     Dates: start: 20120722, end: 20120729
  2. CITALOPRAM HYDROBROMIDE [Concomitant]
     Indication: DEPRESSION
     Route: 065

REACTIONS (2)
  - TACHYCARDIA [None]
  - DYSPNOEA [None]
